FAERS Safety Report 5373740-8 (Version None)
Quarter: 2007Q2

REPORT INFORMATION
  Report Type: 
  Country: None (occurrence: None)
  Receive Date: 20070628
  Receipt Date: 20070620
  Transmission Date: 20071010
  Serious: Yes (Hospitalization)
  Sender: FDA-Public Use
  Company Number: US-ELI_LILLY_AND_COMPANY-US200703001386

PATIENT
  Sex: Female

DRUGS (10)
  1. BYETTA [Suspect]
     Indication: DIABETES MELLITUS NON-INSULIN-DEPENDENT
     Dosage: 5 UG, UNKNOWN
     Route: 065
  2. BYETTA [Suspect]
     Dosage: 10 UG, 2/D
     Route: 058
     Dates: end: 20070115
  3. BYETTA [Suspect]
     Dosage: 5 UG, 2/D
     Route: 058
     Dates: start: 20060208, end: 20060227
  4. BYETTA [Suspect]
     Dosage: 10 UG, 2/D
     Route: 058
     Dates: start: 20060228, end: 20070101
  5. NADOLOL [Concomitant]
  6. GLIPIZIDE [Concomitant]
  7. METFORMIN HCL [Concomitant]
  8. XANAX [Concomitant]
  9. LEXAPRO [Concomitant]
  10. LISINOPRIL [Concomitant]

REACTIONS (2)
  - LYMPHOMA [None]
  - NAUSEA [None]
